FAERS Safety Report 5774997-1 (Version None)
Quarter: 2008Q2

REPORT INFORMATION
  Report Type: 
  Country: None (occurrence: None)
  Receive Date: 20080617
  Receipt Date: 20080609
  Transmission Date: 20081010
  Serious: Yes (Hospitalization)
  Sender: FDA-Public Use
  Company Number: PHHO2008FR02244

PATIENT
  Sex: Female
  Weight: 71.5 kg

DRUGS (2)
  1. TASIGNA [Suspect]
     Indication: CHRONIC MYELOID LEUKAEMIA
     Dosage: 400 MG, BID
     Route: 048
     Dates: start: 20050913, end: 20080207
  2. DAFLON (DIOSMIN) [Concomitant]
     Indication: PHLEBITIS

REACTIONS (6)
  - ACUTE CORONARY SYNDROME [None]
  - AKINESIA [None]
  - BLOOD CREATINE PHOSPHOKINASE INCREASED [None]
  - CHEST PAIN [None]
  - MYOCARDIAL INFARCTION [None]
  - TROPONIN I INCREASED [None]
